FAERS Safety Report 5673973-7 (Version None)
Quarter: 2008Q1

REPORT INFORMATION
  Report Type: 
  Country: None (occurrence: None)
  Receive Date: 20080317
  Receipt Date: 20080307
  Transmission Date: 20080703
  Serious: Yes (Hospitalization, Other)
  Sender: FDA-Public Use
  Company Number: 16246

PATIENT
  Age: 67 Year
  Sex: Female

DRUGS (1)
  1. ACYCLOVIR [Suspect]
     Indication: FACIAL PALSY
     Dosage: 200 MG OTH
     Route: 050

REACTIONS (10)
  - AFFECT LABILITY [None]
  - BRAIN OEDEMA [None]
  - BRONCHOPNEUMONIA [None]
  - CEREBELLAR HAEMATOMA [None]
  - CEREBRAL ISCHAEMIA [None]
  - CRANIAL NERVE PARALYSIS [None]
  - GLASGOW COMA SCALE ABNORMAL [None]
  - HAEMODIALYSIS [None]
  - NEUROLOGICAL SYMPTOM [None]
  - SUBDURAL HAEMATOMA [None]
